FAERS Safety Report 4474623-8 (Version None)
Quarter: 2004Q4

REPORT INFORMATION
  Report Type: 
  Country: None (occurrence: None)
  Receive Date: 20041008
  Receipt Date: 20040928
  Transmission Date: 20050328
  Serious: Yes (Death, Hospitalization, Disabling)
  Sender: FDA-Public Use
  Company Number: 2003-BP-00260RO

PATIENT
  Age: 59 Year
  Sex: Female

DRUGS (20)
  1. DEXAMETHASONE [Suspect]
     Indication: MULTIPLE MYELOMA
     Dosage: 40 MG, PO
     Route: 048
     Dates: start: 20020712, end: 20040729
  2. FONDAPARINUX [Concomitant]
  3. VANCOMYCIN [Concomitant]
  4. CEFEPIME (CEPHALOSPORINS AND RELATED SUBSTANCES) [Concomitant]
  5. DICLOFENAC (DICLOFENAC) [Concomitant]
  6. METOCLOPRAMIDE [Concomitant]
  7. OXYCODONE (OCYCODONE) [Concomitant]
  8. PAMIDRONATE DISODIUM [Concomitant]
  9. BACTRIM [Concomitant]
  10. PANTOPRAZOLE (PANTOPRAZOLE) [Concomitant]
  11. SERTRALINE HYDROCHLORIDE [Concomitant]
  12. ORPHENADRINE CITRATE [Concomitant]
  13. MORPHINE SULFATE [Concomitant]
  14. TRIMETHOBENZAMIDE (TRIMETHOBENZAMIDE) [Concomitant]
  15. ACETAMINOPHEN [Concomitant]
  16. NALOXONE [Concomitant]
  17. LORAZEPAM [Concomitant]
  18. HYDROCORTISONE [Concomitant]
  19. CEFAZOLIN [Concomitant]
  20. DOCUSATE SODIUM (DOCUSATE SODIUM) [Concomitant]

REACTIONS (11)
  - BLOOD MAGNESIUM DECREASED [None]
  - BLOOD POTASSIUM DECREASED [None]
  - CONFUSIONAL STATE [None]
  - FAECAL INCONTINENCE [None]
  - MARKEDLY REDUCED DIETARY INTAKE [None]
  - MENINGITIS ASEPTIC [None]
  - MYOCLONUS [None]
  - PUPILLARY REFLEX IMPAIRED [None]
  - STUPOR [None]
  - TREMOR [None]
  - URINARY INCONTINENCE [None]
